FAERS Safety Report 4878629-6 (Version None)
Quarter: 2006Q1

REPORT INFORMATION
  Report Type: 
  Country: None (occurrence: None)
  Receive Date: 20060110
  Receipt Date: 20060106
  Transmission Date: 20060701
  Serious: Yes (Death)
  Sender: FDA-Public Use
  Company Number: US-2005-018450

PATIENT
  Sex: Male

DRUGS (1)
  1. ULTRAVIST (PHARMACY BULK) [Suspect]
     Indication: COMPUTERISED TOMOGRAM
     Dosage: 100 MIU, 1 DOSE, INTRAVENOUS
     Route: 042
     Dates: start: 20050901, end: 20050901

REACTIONS (2)
  - CONVULSION [None]
  - POST PROCEDURAL COMPLICATION [None]
